FAERS Safety Report 19400574 (Version 1)
Quarter: 2021Q2

REPORT INFORMATION
  Report Type: Spontaneous
  Country: US (occurrence: US)
  Receive Date: 20210610
  Receipt Date: 20210610
  Transmission Date: 20210717
  Serious: No
  Sender: FDA-Public Use
  Company Number: US-GALDERMA-US2021010403

PATIENT
  Age: 31 Year
  Sex: Female

DRUGS (5)
  1. DIFFERIN GEL [Suspect]
     Active Substance: ADAPALENE
     Indication: SKIN DISCOLOURATION
  2. DIFFERIN GEL [Suspect]
     Active Substance: ADAPALENE
     Indication: ACNE
     Dosage: 0.1%
     Route: 061
     Dates: start: 20210402, end: 20210415
  3. DIFFERIN GEL [Suspect]
     Active Substance: ADAPALENE
     Indication: SKIN HYPERPIGMENTATION
  4. UNSPECIFIED MOISTURIZER [Concomitant]
     Active Substance: UNSPECIFIED INGREDIENT
     Indication: PRODUCT USED FOR UNKNOWN INDICATION
     Route: 065
  5. DIFFERIN GEL [Suspect]
     Active Substance: ADAPALENE
     Indication: DILATED PORES
     Dosage: 0.1%
     Route: 061
     Dates: start: 20210416

REACTIONS (6)
  - Underdose [Recovered/Resolved]
  - Inappropriate schedule of product administration [Recovered/Resolved]
  - Erythema [Not Recovered/Not Resolved]
  - Product use in unapproved indication [Recovered/Resolved]
  - Seborrhoea [Not Recovered/Not Resolved]
  - Rash macular [Not Recovered/Not Resolved]

NARRATIVE: CASE EVENT DATE: 20210402
